FAERS Safety Report 7630656 (Version 4)
Quarter: 2012Q4

REPORT INFORMATION
  Report Type: 
  Country: CN (occurrence: CN)
  Receive Date: 20101015
  Receipt Date: 20121231
  Transmission Date: 20130627
  Serious: Yes (Death, Other)
  Sender: FDA-Public Use
  Company Number: CN-MPIJNJ-2010-05188

PATIENT

DRUGS (4)
  1. VELCADE [Suspect]
     Indication: MULTIPLE MYELOMA
     Dosage: 2.4 mg, UNK
     Route: 042
  2. VELCADE [Suspect]
     Dosage: 2.2 mg, UNK
     Route: 042
     Dates: start: 20081114
  3. ADRIAMYCIN                         /00330901/ [Concomitant]
  4. DEXAMETHASONE [Concomitant]

REACTIONS (18)
  - Plasma cell myeloma [Fatal]
  - Gastroenteritis [Fatal]
  - Pneumonia [Fatal]
  - Respiratory failure [Fatal]
  - Hypokalaemia [Fatal]
  - Bone marrow failure [Fatal]
  - Vomiting [Unknown]
  - Diarrhoea [Unknown]
  - Nausea [Unknown]
  - Dehydration [Unknown]
  - Pyrexia [Unknown]
  - Thrombocytopenia [Unknown]
  - Hypotension [Unknown]
  - Haematuria [Unknown]
  - Urinary retention [Unknown]
  - Electrolyte imbalance [Unknown]
  - Lung infection [Unknown]
  - Circulatory collapse [Unknown]
